FAERS Safety Report 9455266 (Version 1)
Quarter: 2013Q3

REPORT INFORMATION
  Report Type: Spontaneous
  Country: US (occurrence: US)
  Receive Date: 20130813
  Receipt Date: 20130813
  Transmission Date: 20140515
  Serious: Yes (Hospitalization)
  Sender: FDA-Public Use
  Company Number: US-BAYER-2013-096393

PATIENT
  Age: 35 Year
  Sex: Female

DRUGS (2)
  1. YASMIN [Suspect]
     Indication: CONTRACEPTION
     Dosage: 3MG/0.03 MG
     Route: 048
  2. YASMIN [Suspect]
     Indication: MENORRHAGIA

REACTIONS (4)
  - Thrombosis [None]
  - Local swelling [None]
  - Pain in extremity [None]
  - Venous injury [None]
